FAERS Safety Report 7131324-5 (Version None)
Quarter: 2010Q4

REPORT INFORMATION
  Report Type: 
  Country: None (occurrence: None)
  Receive Date: 20101124
  Receipt Date: 20101124
  Transmission Date: 20110411
  Serious: No
  Sender: FDA-Public Use
  Company Number: None

PATIENT
  Sex: Female
  Weight: 58 kg

DRUGS (3)
  1. CARBOPLATIN [Suspect]
     Dosage: 1683 MG
     Dates: end: 20100608
  2. ERBITUX [Suspect]
     Dosage: 2340 MG
     Dates: end: 20100622
  3. TAXOL [Suspect]
     Dosage: 600 MG
     Dates: end: 20100608

REACTIONS (1)
  - NEUTROPHIL COUNT ABNORMAL [None]
